FAERS Safety Report 7299365-5 (Version None)
Quarter: 2011Q1

REPORT INFORMATION
  Report Type: 
  Country: None (occurrence: None)
  Receive Date: 20110217
  Receipt Date: 20110215
  Transmission Date: 20110831
  Serious: Yes (Congenital Anomaly)
  Sender: FDA-Public Use
  Company Number: A0913872A

PATIENT

DRUGS (2)
  1. EPZICOM [Suspect]
     Indication: ANTIVIRAL TREATMENT
     Route: 064
     Dates: start: 20080101
  2. PREZISTA [Suspect]
     Indication: ANTIVIRAL TREATMENT
     Route: 064
     Dates: start: 20100615

REACTIONS (2)
  - THROMBOPHLEBITIS NEONATAL [None]
  - DRUG EXPOSURE DURING PREGNANCY [None]
